FAERS Safety Report 11273055 (Version 2)
Quarter: 2015Q4

REPORT INFORMATION
  Report Type: Spontaneous
  Country: US (occurrence: US)
  Receive Date: 20150715
  Receipt Date: 20151013
  Transmission Date: 20160304
  Serious: Yes (Other)
  Sender: FDA-Public Use
  Company Number: US-ELI_LILLY_AND_COMPANY-US201507002197

PATIENT
  Age: 68 Year
  Sex: Female
  Weight: 77.1 kg

DRUGS (1)
  1. HUMALOG [Suspect]
     Active Substance: INSULIN LISPRO
     Indication: PRODUCT USED FOR UNKNOWN INDICATION
     Dosage: UNK, PRN
     Route: 058

REACTIONS (5)
  - Blood glucose increased [Recovered/Resolved]
  - Hypoglycaemic unconsciousness [Recovered/Resolved]
  - Therapeutic response decreased [Unknown]
  - Blood glucose increased [Recovered/Resolved]
  - Scar [Unknown]

NARRATIVE: CASE EVENT DATE: 20150627
